FAERS Safety Report 4560790-4 (Version None)
Quarter: 2005Q1

REPORT INFORMATION
  Report Type: 
  Country: None (occurrence: None)
  Receive Date: 20050124
  Receipt Date: 20050117
  Transmission Date: 20050727
  Serious: Yes (Hospitalization)
  Sender: FDA-Public Use
  Company Number: GBWYE037213SEP04

PATIENT
  Age: 60 Year
  Sex: Male

DRUGS (8)
  1. EFFEXOR XR [Suspect]
     Indication: DEPRESSION
     Dosage: 225 MG 1X PER 1 DAY ORAL; 150 MG 1X PER 1 DAY ORAL
     Route: 048
  2. LITHIUM CARBONATE [Suspect]
     Indication: DEPRESSION
     Dosage: 600 MG 1X PER 1 DAY ORAL
     Route: 048
     Dates: end: 20040606
  3. OLANZAPINE [Concomitant]
  4. ZOPICLONE (ZOPICLONE) [Concomitant]
  5. NU-SEALS ASPIRIN (ACETYLSALICYLIC ACID) [Concomitant]
  6. ISTIN (AMLODIPINE BESILATE) [Concomitant]
  7. CARDURA XL (DOXAZOSIN MESILATE) [Concomitant]
  8. ATENOLOL [Concomitant]

REACTIONS (3)
  - DRUG INTERACTION [None]
  - HAEMOGLOBIN DECREASED [None]
  - THERAPEUTIC AGENT TOXICITY [None]
